FAERS Safety Report 14287793 (Version 2)
Quarter: 2018Q1

REPORT INFORMATION
  Report Type: Spontaneous
  Country: AU (occurrence: AU)
  Receive Date: 20171215
  Receipt Date: 20180110
  Transmission Date: 20180509
  Serious: Yes (Hospitalization, Other)
  Sender: FDA-Public Use
  Company Number: AU-AMGEN-AUSSP2017185908

PATIENT
  Age: 67 Year
  Sex: Female

DRUGS (1)
  1. ENBREL [Suspect]
     Active Substance: ETANERCEPT
     Indication: RHEUMATOID ARTHRITIS
     Dosage: 50 MG, QWK
     Route: 065
     Dates: start: 2017

REACTIONS (2)
  - Condition aggravated [Recovered/Resolved]
  - Rheumatoid arthritis [Recovered/Resolved]

NARRATIVE: CASE EVENT DATE: 2017
